FAERS Safety Report 8002525-9 (Version None)
Quarter: 2011Q4

REPORT INFORMATION
  Report Type: 
  Country: None (occurrence: None)
  Receive Date: 20111222
  Receipt Date: 20111209
  Transmission Date: 20120403
  Serious: Yes (Other)
  Sender: FDA-Public Use
  Company Number: FR-PFIZER INC-2011288337

PATIENT
  Age: 44 Year
  Sex: Female
  Weight: 56.6 kg

DRUGS (8)
  1. NORVIR [Suspect]
     Indication: HIV INFECTION
     Dosage: 100 MG, 1X/DAY
     Dates: start: 20110401, end: 20111114
  2. RIBAVIRIN [Concomitant]
     Indication: HEPATITIS C
     Dosage: 1000 MG, 2X/DAY
     Route: 048
     Dates: start: 20111003
  3. IBUPROFEN [Suspect]
     Indication: MYALGIA
     Dosage: 400 MG DAILY AS NEEDED
  4. PEGINTERFERON ALFA-2A [Suspect]
     Indication: HEPATITIS C
     Dosage: 180 UG, 1X/WEEK
     Route: 058
     Dates: start: 20111003
  5. EMTRICITABINE [Concomitant]
     Indication: HIV INFECTION
     Dosage: 200 MG, 1X/DAY
     Dates: start: 20070702
  6. VIREAD [Suspect]
     Indication: HIV INFECTION
     Dosage: 245 MG, 1X/DAY
     Dates: start: 20050715
  7. VX-950 [Suspect]
     Indication: HEPATITIS C
     Dosage: 750 MG, 3X/DAY
     Route: 048
     Dates: start: 20111031
  8. ATAZANAVIR [Suspect]
     Indication: HIV INFECTION
     Dosage: 300 MG, 1X/DAY
     Dates: start: 20110401, end: 20111114

REACTIONS (2)
  - HYPERBILIRUBINAEMIA [None]
  - RENAL FAILURE [None]
